FAERS Safety Report 12322137 (Version 1)
Quarter: 2016Q2

REPORT INFORMATION
  Report Type: Spontaneous
  Country: US (occurrence: US)
  Receive Date: 20160502
  Receipt Date: 20160502
  Transmission Date: 20160815
  Serious: Yes (Disabling, Other)
  Sender: FDA-Public Use
  Company Number: PHHY2016US057357

PATIENT
  Sex: Male

DRUGS (4)
  1. THIOTEPA. [Suspect]
     Active Substance: THIOTEPA
     Indication: DESMOPLASTIC SMALL ROUND CELL TUMOUR
     Dosage: 300 MG/M2, QD
     Route: 065
  2. CYCLOPHOSPHAMIDE. [Suspect]
     Active Substance: CYCLOPHOSPHAMIDE
     Indication: DESMOPLASTIC SMALL ROUND CELL TUMOUR
     Route: 065
  3. TOPOTECAN [Suspect]
     Active Substance: TOPOTECAN\TOPOTECAN HYDROCHLORIDE
     Indication: DESMOPLASTIC SMALL ROUND CELL TUMOUR
     Dosage: 2 MG/M2, QD (ON DAY^S -8, -7, -6, -5 AND -4)
     Route: 041
  4. CARBOPLATIN. [Suspect]
     Active Substance: CARBOPLATIN
     Indication: DESMOPLASTIC SMALL ROUND CELL TUMOUR
     Dosage: 600 MG/M2, QD
     Route: 065

REACTIONS (5)
  - Deafness [Unknown]
  - Mucosal inflammation [Unknown]
  - Haematuria [Unknown]
  - Sepsis [Unknown]
  - Hyperbilirubinaemia [Unknown]
